FAERS Safety Report 4734722-X (Version None)
Quarter: 2005Q3

REPORT INFORMATION
  Report Type: 
  Country: None (occurrence: None)
  Receive Date: 20050804
  Receipt Date: 20050413
  Transmission Date: 20060218
  Serious: Yes (Other)
  Sender: FDA-Public Use
  Company Number: US-GLAXOSMITHKLINE-A0554010A

PATIENT
  Age: 75 Year
  Sex: Male

DRUGS (10)
  1. AVANDIA [Suspect]
     Dosage: 4MG TWICE PER DAY
     Route: 048
     Dates: start: 20020612
  2. CASODEX [Suspect]
     Indication: PROSTATE CANCER
     Dates: start: 20020801, end: 20040101
  3. GLIPIZIDE [Concomitant]
     Indication: DRUG USE FOR UNKNOWN INDICATION
     Dosage: 10MG TWICE PER DAY
  4. PLAVIX [Concomitant]
     Indication: DRUG USE FOR UNKNOWN INDICATION
  5. TOPROL-XL [Concomitant]
     Indication: DRUG USE FOR UNKNOWN INDICATION
     Dates: start: 20050204
  6. LUPRON [Concomitant]
     Indication: PROSTATE CANCER
     Dates: start: 20020801, end: 20030601
  7. HYDROCHLOROTHIAZIDE [Concomitant]
  8. CALAN [Concomitant]
     Dates: end: 20050204
  9. DIOVAN [Concomitant]
  10. ASPIRIN [Concomitant]

REACTIONS (11)
  - ANGINA PECTORIS [None]
  - CARDIAC FAILURE CONGESTIVE [None]
  - DYSPNOEA EXERTIONAL [None]
  - EJECTION FRACTION DECREASED [None]
  - HYPERGLYCAEMIA [None]
  - OEDEMA PERIPHERAL [None]
  - ORTHOPNOEA [None]
  - OXYGEN SATURATION DECREASED [None]
  - PITTING OEDEMA [None]
  - PROSTATE CANCER [None]
  - WEIGHT INCREASED [None]
